FAERS Safety Report 9996394 (Version 2)
Quarter: 2014Q2

REPORT INFORMATION
  Report Type: Report from Study
  Country: GB (occurrence: GB)
  Receive Date: 20140311
  Receipt Date: 20140620
  Transmission Date: 20141212
  Serious: Yes (Death)
  Sender: FDA-Public Use
  Company Number: GB-ABBVIE-14P-167-1210302-00

PATIENT
  Sex: Male

DRUGS (1)
  1. HUMIRA [Suspect]
     Indication: PSORIATIC ARTHROPATHY
     Route: 058
     Dates: start: 20031015, end: 20041115

REACTIONS (5)
  - Multi-organ failure [Fatal]
  - Pancreatic haemorrhage [Fatal]
  - Fat necrosis [Fatal]
  - Mycobacterial infection [Fatal]
  - Tuberculosis [Fatal]
